FAERS Safety Report 16467080 (Version 1)
Quarter: 2019Q2

REPORT INFORMATION
  Report Type: Other
  Country: SK (occurrence: SK)
  Receive Date: 20190624
  Receipt Date: 20190624
  Transmission Date: 20190711
  Serious: Yes (Hospitalization, Other)
  Sender: FDA-Public Use
  Company Number: SK-CELLTRION INC.-2019SK021978

PATIENT

DRUGS (2)
  1. INFLIXIMAB (UNKNOWN) [Suspect]
     Active Substance: INFLIXIMAB
     Indication: CROHN^S DISEASE
     Dosage: UNK, DOSAGE FORM: LYOPHILIZED POWDER
     Route: 042
     Dates: start: 201701
  2. INFLIXIMAB (UNKNOWN) [Suspect]
     Active Substance: INFLIXIMAB
     Dosage: UNK, DOSAGE FORM: LYOPHILIZED POWDER
     Route: 042
     Dates: start: 201802, end: 201809

REACTIONS (4)
  - Pulmonary tuberculosis [Unknown]
  - Drug ineffective [Unknown]
  - Pyoderma gangrenosum [Unknown]
  - Pneumonia [Unknown]

NARRATIVE: CASE EVENT DATE: 2018
